FAERS Safety Report 23953850 (Version 1)
Quarter: 2024Q2

REPORT INFORMATION
  Report Type: Spontaneous
  Country: TR (occurrence: TR)
  Receive Date: 20240609
  Receipt Date: 20240609
  Transmission Date: 20240716
  Serious: Yes (Hospitalization, Other)
  Sender: FDA-Public Use
  Company Number: TR-AMNEAL PHARMACEUTICALS-2024-AMRX-02036

PATIENT
  Age: 61 Year
  Sex: Female

DRUGS (2)
  1. TIGECYCLINE [Suspect]
     Active Substance: TIGECYCLINE
     Indication: Pyrexia
     Dosage: UNK
     Route: 065
  2. DAPTOMYCIN [Concomitant]
     Active Substance: DAPTOMYCIN
     Indication: Pyrexia
     Dosage: UNK
     Route: 065

REACTIONS (3)
  - Hepatic steatosis [Unknown]
  - Hepatic vein thrombosis [Unknown]
  - Acute hepatic failure [Unknown]
